FAERS Safety Report 4809377-6 (Version None)
Quarter: 2005Q4

REPORT INFORMATION
  Report Type: 
  Country: None (occurrence: None)
  Receive Date: 20051021
  Receipt Date: 20051012
  Transmission Date: 20060501
  Serious: Yes (Hospitalization, Other)
  Sender: FDA-Public Use
  Company Number: 2005142135

PATIENT
  Age: 38 Year
  Sex: Male
  Weight: 65.318 kg

DRUGS (4)
  1. XANAX [Suspect]
     Indication: ANXIETY
     Dosage: 3 MG (1 MG, 3 IN 1 D),
     Dates: start: 19940101
  2. XANAX [Suspect]
     Indication: PANIC ATTACK
     Dosage: 3 MG (1 MG, 3 IN 1 D),
     Dates: start: 19940101
  3. PROZAC [Concomitant]
  4. NORCO [Concomitant]

REACTIONS (15)
  - AMNESIA [None]
  - ANOSMIA [None]
  - BACK PAIN [None]
  - BALANCE DISORDER [None]
  - BRAIN DAMAGE [None]
  - CEREBRAL HAEMORRHAGE [None]
  - CLAVICLE FRACTURE [None]
  - DYSGEUSIA [None]
  - FALL [None]
  - JOINT SWELLING [None]
  - ROTATOR CUFF SYNDROME [None]
  - SKULL FRACTURE [None]
  - SPINAL COMPRESSION FRACTURE [None]
  - THORACIC VERTEBRAL FRACTURE [None]
  - THROMBOSIS [None]
